FAERS Safety Report 18869041 (Version 1)
Quarter: 2021Q1

REPORT INFORMATION
  Report Type: Spontaneous
  Country: GB (occurrence: GB)
  Receive Date: 20210210
  Receipt Date: 20210210
  Transmission Date: 20210420
  Serious: Yes (Hospitalization)
  Sender: FDA-Public Use
  Company Number: GB-DRREDDYS-GER/UKI/21/0131715

PATIENT
  Age: 54 Year
  Sex: Female

DRUGS (70)
  1. TRASTUZUMAB EMTANSINE [Suspect]
     Active Substance: ADO-TRASTUZUMAB EMTANSINE
     Indication: HER2 POSITIVE BREAST CANCER
     Dosage: 600 MILLIGRAM, EVERY MONTH
     Route: 058
     Dates: start: 20150716, end: 20171222
  2. AMOXICILLIN. [Concomitant]
     Active Substance: AMOXICILLIN
     Indication: PYREXIA
     Dosage: 1000 MILLIGRAM, ONCE A DAY
     Route: 048
     Dates: start: 20180701, end: 20180711
  3. AMOXICILLIN. [Concomitant]
     Active Substance: AMOXICILLIN
     Indication: LOWER RESPIRATORY TRACT INFECTION
     Dosage: 1 GRAM, 3 TIMES A DAY
     Route: 048
     Dates: start: 20191218, end: 20191221
  4. AMOXICILLIN. [Concomitant]
     Active Substance: AMOXICILLIN
     Dosage: 1650 MILLIGRAM, DAILY
     Route: 048
     Dates: start: 20180701, end: 20180711
  5. AMOXICILLIN. [Concomitant]
     Active Substance: AMOXICILLIN
     Dosage: 3 GRAM, DAILY
     Route: 042
     Dates: start: 20191218, end: 20191219
  6. AMOXICILLIN. [Concomitant]
     Active Substance: AMOXICILLIN
     Dosage: 1500 MILLIGRAM, DAILY (0.33 DAY)
     Route: 048
     Dates: start: 20190414
  7. DENOSUMAB [Concomitant]
     Active Substance: DENOSUMAB
     Dosage: 120 MILLIGRAM
     Route: 058
     Dates: start: 20170604
  8. DIAZEPAM. [Concomitant]
     Active Substance: DIAZEPAM
     Indication: MUSCULOSKELETAL STIFFNESS
     Dosage: 2 MILLIGRAM (0.33 DAY)
     Route: 048
     Dates: start: 20180105
  9. GABAPENTIN. [Concomitant]
     Active Substance: GABAPENTIN
     Indication: PRODUCT USED FOR UNKNOWN INDICATION
     Dosage: 1.2 GRAM, 3 TIMES A DAY
     Route: 048
     Dates: start: 20151231
  10. LISINOPRIL. [Concomitant]
     Active Substance: LISINOPRIL
     Indication: PRODUCT USED FOR UNKNOWN INDICATION
     Dosage: 2.5 MILLIGRAM, 3 TIMES A DAY
     Route: 048
     Dates: start: 20161110
  11. MORPHINE SULFATE. [Concomitant]
     Active Substance: MORPHINE SULFATE
     Dosage: 10 MILLIGRAM, ONCE A DAY
     Route: 048
     Dates: start: 20171224
  12. LETROZOLE. [Suspect]
     Active Substance: LETROZOLE
     Indication: HER2 POSITIVE BREAST CANCER
     Dosage: 2.5 MILLIGRAM, ONCE A DAY
     Route: 048
     Dates: start: 201507
  13. EXEMESTANE. [Suspect]
     Active Substance: EXEMESTANE
     Indication: HER2 POSITIVE BREAST CANCER
     Dosage: 25 MILLIGRAM, ONCE A DAY
     Route: 048
     Dates: start: 20170428, end: 20180110
  14. AMOXICILLIN. [Concomitant]
     Active Substance: AMOXICILLIN
     Dosage: 500 MILLIGRAM, 3 TIMES A DAY
     Route: 048
     Dates: start: 20190414
  15. DEXAMETHASONE. [Concomitant]
     Active Substance: DEXAMETHASONE
     Dosage: 4 MILLIGRAM, TWO TIMES A DAY
     Route: 048
     Dates: start: 20151020, end: 20151103
  16. DOXYCYCLINE. [Concomitant]
     Active Substance: DOXYCYCLINE
     Indication: PYREXIA
     Dosage: 100 MILLIGRAM, ONCE A DAY
     Route: 048
     Dates: start: 20180815
  17. LANSOPRAZOLE. [Concomitant]
     Active Substance: LANSOPRAZOLE
     Indication: PRODUCT USED FOR UNKNOWN INDICATION
     Dosage: 30 MILLIGRAM, ONCE A DAY
     Route: 048
     Dates: start: 2001
  18. PROMETHAZINE HYDROCHLORIDE. [Concomitant]
     Active Substance: PROMETHAZINE HYDROCHLORIDE
     Indication: PRODUCT USED FOR UNKNOWN INDICATION
     Dosage: 50 MILLIGRAM, ONCE A DAY
     Route: 048
  19. ACICLOVIR [Concomitant]
     Active Substance: ACYCLOVIR
     Indication: HERPES ZOSTER
     Dosage: 800 MILLIGRAM
     Route: 048
     Dates: start: 20160727
  20. AMOXICILLIN. [Concomitant]
     Active Substance: AMOXICILLIN
     Dosage: 3000 MILLIGRAM, DAILY
     Route: 048
     Dates: start: 20180701, end: 20180711
  21. CLARITHROMYCIN. [Concomitant]
     Active Substance: CLARITHROMYCIN
     Indication: LOWER RESPIRATORY TRACT INFECTION
     Dosage: 1000 MILLIGRAM, ONCE A DAY
     Route: 048
     Dates: start: 20180701, end: 20180711
  22. DEXAMETHASONE. [Concomitant]
     Active Substance: DEXAMETHASONE
     Indication: METASTASES TO BONE
     Dosage: 4 MILLIGRAM, TWO TIMES A DAY
     Route: 048
     Dates: start: 20151104, end: 20151110
  23. DIAZEPAM. [Concomitant]
     Active Substance: DIAZEPAM
     Indication: BACK PAIN
     Dosage: 6 MILLIGRAM, ONCE A DAY
     Route: 048
     Dates: start: 20180105
  24. GABAPENTIN. [Concomitant]
     Active Substance: GABAPENTIN
     Dosage: 300 MILLIGRAM
     Route: 065
     Dates: start: 20151231
  25. MAGNESIUM ASPARTATE [Concomitant]
     Active Substance: MAGNESIUM ASPARTATE
     Indication: HYPOMAGNESAEMIA
     Dosage: 6.5 MILLIGRAM, TWO TIMES A DAY
     Route: 048
     Dates: start: 20191111
  26. MORPHINE SULFATE. [Concomitant]
     Active Substance: MORPHINE SULFATE
     Indication: BACK PAIN
     Dosage: 40 MILLIGRAM, ONCE A DAY
     Route: 048
     Dates: start: 20150516, end: 201611
  27. MORPHINE SULFATE. [Concomitant]
     Active Substance: MORPHINE SULFATE
     Indication: PRODUCT USED FOR UNKNOWN INDICATION
     Dosage: 30 MILLIGRAM, ONCE A DAY
     Route: 048
     Dates: start: 201504
  28. ZOMORPH [Concomitant]
     Active Substance: MORPHINE SULFATE
     Indication: PAIN
     Dosage: 30 MILLIGRAM
     Route: 065
     Dates: start: 201611
  29. AMOXICILLIN. [Concomitant]
     Active Substance: AMOXICILLIN
     Indication: OSTEOMYELITIS
     Dosage: 550 MILLIGRAM, 3 TIMES A DAY
     Route: 048
     Dates: start: 20180701, end: 20180711
  30. AMOXICILLIN. [Concomitant]
     Active Substance: AMOXICILLIN
     Dosage: UNK
     Route: 048
     Dates: start: 20160317, end: 20160317
  31. CLAVULANATE POTASSIUM [Concomitant]
     Active Substance: CLAVULANATE POTASSIUM
     Indication: CELLULITIS
     Dosage: 625 MILLIGRAM, 3 TIMES A DAY
     Route: 048
     Dates: start: 20190205, end: 20190206
  32. CLARITHROMYCIN. [Concomitant]
     Active Substance: CLARITHROMYCIN
     Dosage: 1000 MILLIGRAM, ONCE A DAY
     Route: 048
     Dates: start: 20191111, end: 20191118
  33. CLARITHROMYCIN. [Concomitant]
     Active Substance: CLARITHROMYCIN
     Dosage: 1000 MILLIGRAM, ONCE A DAY
     Route: 048
     Dates: start: 20191219, end: 20191221
  34. CLARITHROMYCIN. [Concomitant]
     Active Substance: CLARITHROMYCIN
     Dosage: 1100 MILLIGRAM, ONCE A DAY
     Route: 048
     Dates: start: 20190415
  35. CYCLIZINE [Concomitant]
     Active Substance: CYCLIZINE
     Indication: PRODUCT USED FOR UNKNOWN INDICATION
     Dosage: 50 MILLIGRAM, 3 TIMES A DAY
     Route: 048
     Dates: start: 201507
  36. DERMOL [Concomitant]
     Active Substance: BENZALKONIUM CHLORIDE\CHLORHEXIDINE HYDROCHLORIDE\ISOPROPYL MYRISTATE\PARAFFIN
     Indication: PRODUCT USED FOR UNKNOWN INDICATION
     Dosage: UNK UNK, 4, ONCE A DAY (0.25 DAY)
     Route: 061
  37. DEXAMETHASONE. [Concomitant]
     Active Substance: DEXAMETHASONE
     Dosage: 2 MILLIGRAM, ONCE A DAY
     Route: 048
     Dates: start: 20151118, end: 20151124
  38. FERROUS SULFATE. [Concomitant]
     Active Substance: FERROUS SULFATE
     Indication: ANAEMIA
     Dosage: 200 MILLIGRAM, ONCE A DAY
     Route: 048
     Dates: start: 20200804
  39. FUROSEMIDE. [Concomitant]
     Active Substance: FUROSEMIDE
     Dosage: 40 MILLIGRAM, ONCE A DAY
     Route: 048
     Dates: start: 20191117
  40. LOPERAMIDE [Concomitant]
     Active Substance: LOPERAMIDE
     Indication: DIARRHOEA
     Dosage: UNK
     Route: 065
     Dates: start: 201804
  41. TINZAPARIN [Concomitant]
     Active Substance: TINZAPARIN
     Indication: DEEP VEIN THROMBOSIS
     Dosage: UNK UNK,1, ONCE A DAY
     Route: 058
     Dates: start: 20190928
  42. TRASTUZUMAB EMTANSINE [Suspect]
     Active Substance: ADO-TRASTUZUMAB EMTANSINE
     Dosage: 420 MILLIGRAM, EVERY FOUR WEEK
     Route: 042
     Dates: start: 20180118
  43. VORHYALURONIDASE ALFA [Suspect]
     Active Substance: HYALURONIDASE (HUMAN RECOMBINANT)
     Indication: HER2 POSITIVE BREAST CANCER
     Dosage: 600 MILLIGRAM, EVERY MONTH
     Route: 058
     Dates: start: 20150716
  44. CLARITHROMYCIN. [Concomitant]
     Active Substance: CLARITHROMYCIN
     Indication: SEPSIS
     Dosage: 1000 MILLIGRAM, ONCE A DAY
     Route: 048
     Dates: start: 20190611, end: 20190611
  45. DENOSUMAB [Concomitant]
     Active Substance: DENOSUMAB
     Indication: METASTASES TO BONE
     Dosage: 120 MILLIGRAM
     Route: 058
     Dates: start: 20180118
  46. FUROSEMIDE. [Concomitant]
     Active Substance: FUROSEMIDE
     Indication: LYMPHOEDEMA
     Dosage: 40 MILLIGRAM, TWO TIMES A DAY
     Route: 042
     Dates: start: 20200623, end: 20200626
  47. FUROSEMIDE. [Concomitant]
     Active Substance: FUROSEMIDE
     Dosage: 40 MILLIGRAM, ONCE A DAY
     Route: 042
     Dates: start: 20200622, end: 20200623
  48. FUROSEMIDE. [Concomitant]
     Active Substance: FUROSEMIDE
     Dosage: 80 MILLIGRAM, ONCE A DAY
     Route: 048
     Dates: start: 20151112, end: 20151118
  49. LEVOTHYROXINE. [Concomitant]
     Active Substance: LEVOTHYROXINE
     Indication: HYPOTHYROIDISM
     Dosage: 50 MICROGRAM, ONCE A DAY
     Route: 048
     Dates: start: 20200311
  50. MORPHINE SULFATE. [Concomitant]
     Active Substance: MORPHINE SULFATE
     Dosage: 10 MILLIGRAM, ONCE A DAY
     Route: 048
     Dates: start: 20171224
  51. AMOXICILLIN. [Concomitant]
     Active Substance: AMOXICILLIN
     Dosage: 3 GRAM, DAILY (1 GRAM 0.33 DAY)
     Route: 042
     Dates: start: 20191111, end: 20191115
  52. DEXAMETHASONE. [Concomitant]
     Active Substance: DEXAMETHASONE
     Dosage: 2 MILLIGRAM, ONCE A DAY
     Route: 048
     Dates: start: 20151125, end: 20151202
  53. HYOSCINE BUTYLBROMIDE [Concomitant]
     Active Substance: BUTYLSCOPOLAMINE BROMIDE
     Indication: PRODUCT USED FOR UNKNOWN INDICATION
     Dosage: 10 MILLIGRAM, 3 TIMES A DAY
     Route: 048
     Dates: start: 20181222
  54. MORPHINE SULFATE. [Concomitant]
     Active Substance: MORPHINE SULFATE
     Dosage: 60 MILLIGRAM, ONCE A DAY
     Route: 048
     Dates: start: 201504, end: 20160516
  55. PROMETHAZINE HYDROCHLORIDE. [Concomitant]
     Active Substance: PROMETHAZINE HYDROCHLORIDE
     Dosage: 25 MILLIGRAM, ONCE A DAY
     Route: 048
  56. ZANAMIVIR [Concomitant]
     Active Substance: ZANAMIVIR
     Indication: PYREXIA
     Dosage: 10 MILLIGRAM
     Route: 055
     Dates: start: 20191218
  57. ACICLOVIR [Concomitant]
     Active Substance: ACYCLOVIR
     Indication: ORAL HERPES
     Dosage: UNK, OTHER
     Route: 061
     Dates: start: 20160727
  58. ACICLOVIR [Concomitant]
     Active Substance: ACYCLOVIR
     Indication: ORAL HERPES
  59. DEXAMETHASONE. [Concomitant]
     Active Substance: DEXAMETHASONE
     Dosage: 2 MILLIGRAM, TWO TIMES A DAY
     Route: 048
     Dates: start: 20151111, end: 20151117
  60. FUROSEMIDE. [Concomitant]
     Active Substance: FUROSEMIDE
     Indication: OEDEMA PERIPHERAL
     Dosage: 20 MILLIGRAM, ONCE A DAY
     Route: 048
     Dates: start: 20191113, end: 20191116
  61. LANSOPRAZOLE. [Concomitant]
     Active Substance: LANSOPRAZOLE
     Dosage: 15 MILLIGRAM
     Route: 048
     Dates: start: 2001
  62. NAPROXEN. [Concomitant]
     Active Substance: NAPROXEN
     Indication: PRODUCT USED FOR UNKNOWN INDICATION
     Dosage: 250 MILLIGRAM, TWO TIMES A DAY
     Route: 048
  63. PARACETAMOL [Concomitant]
     Active Substance: ACETAMINOPHEN
     Indication: PRODUCT USED FOR UNKNOWN INDICATION
     Dosage: 500 MILLIGRAM, 1 AS NECESSARY
     Route: 048
     Dates: start: 201504
  64. ACIDEX [Concomitant]
     Indication: DYSPEPSIA
     Dosage: 50 MILLILITER, 1, AS NECESSARY
     Route: 048
  65. VITAMIN D3 [Concomitant]
     Active Substance: CHOLECALCIFEROL
     Indication: PRODUCT USED FOR UNKNOWN INDICATION
     Dosage: 400 INTERNATIONAL UNIT, ONCE A DAY
     Route: 048
     Dates: start: 20150827
  66. AMOXICILLIN. [Concomitant]
     Active Substance: AMOXICILLIN
     Indication: PRODUCT USED FOR UNKNOWN INDICATION
     Dosage: 500 MILLIGRAM, 3 TIMES A DAY
     Route: 048
     Dates: start: 20191115, end: 20191118
  67. AMOXICILLIN AND CLAVULANIC ACID [Concomitant]
     Active Substance: AMOXICILLIN\CLAVULANIC ACID
     Indication: PYREXIA
     Dosage: UNK
     Route: 048
     Dates: start: 20190322
  68. CITALOPRAM [Concomitant]
     Active Substance: CITALOPRAM HYDROBROMIDE
     Indication: PRODUCT USED FOR UNKNOWN INDICATION
     Dosage: 40 MILLIGRAM, ONCE A DAY
     Route: 048
     Dates: start: 2005
  69. DEXAMETHASONE. [Concomitant]
     Active Substance: DEXAMETHASONE
     Dosage: 8 MILLIGRAM, TWO TIMES A DAY
     Route: 048
     Dates: start: 20151008, end: 20151020
  70. FUROSEMIDE. [Concomitant]
     Active Substance: FUROSEMIDE
     Dosage: 40 MILLIGRAM
     Route: 048
     Dates: start: 20200626

REACTIONS (1)
  - Pneumonia [Recovered/Resolved]

NARRATIVE: CASE EVENT DATE: 20191221
